FAERS Safety Report 6257618-3 (Version None)
Quarter: 2009Q3

REPORT INFORMATION
  Report Type: 
  Country: None (occurrence: None)
  Receive Date: 20090706
  Receipt Date: 20090629
  Transmission Date: 20100115
  Serious: Yes (Hospitalization)
  Sender: FDA-Public Use
  Company Number: US-ELI_LILLY_AND_COMPANY-US200906006785

PATIENT
  Sex: Female

DRUGS (6)
  1. FORTEO [Suspect]
     Dosage: 20 UG, DAILY (1/D)
     Dates: start: 20070101
  2. POTASSIUM CHLORIDE [Concomitant]
     Dates: start: 20090601
  3. DIGOXIN [Concomitant]
     Indication: PALPITATIONS
     Dates: start: 20090601
  4. CADUET [Concomitant]
  5. ATENOLOL [Concomitant]
  6. ASPIRIN [Concomitant]
     Dosage: 162 MG, UNK

REACTIONS (6)
  - BLOOD POTASSIUM DECREASED [None]
  - DIARRHOEA [None]
  - FEAR [None]
  - GASTROENTERITIS VIRAL [None]
  - PALPITATIONS [None]
  - VOMITING [None]
